FAERS Safety Report 5730401-0 (Version None)
Quarter: 2008Q2

REPORT INFORMATION
  Report Type: 
  Country: None (occurrence: None)
  Receive Date: 20080502
  Receipt Date: 20060811
  Transmission Date: 20081010
  Serious: Yes (Hospitalization)
  Sender: FDA-Public Use
  Company Number: 2004JP001620

PATIENT
  Age: 49 Year
  Sex: Male
  Weight: 68 kg

DRUGS (2)
  1. PROTOPIC [Suspect]
     Indication: DERMATITIS ATOPIC
     Dosage: 0.10 %,  TOPICAL  ;  0.10 %, BID, TOPICAL
     Route: 061
     Dates: start: 20001111, end: 20011221
  2. PROTOPIC [Suspect]
     Indication: DERMATITIS ATOPIC
     Dosage: 0.10 %,  TOPICAL  ;  0.10 %, BID, TOPICAL
     Route: 061
     Dates: start: 20020325, end: 20040530

REACTIONS (8)
  - B-CELL LYMPHOMA STAGE I [None]
  - BRONCHIOLOALVEOLAR CARCINOMA [None]
  - EOSINOPHIL COUNT INCREASED [None]
  - EPSTEIN-BARR VIRUS INFECTION [None]
  - FIBROSIS [None]
  - LUNG CARCINOMA CELL TYPE UNSPECIFIED STAGE I [None]
  - NON-HODGKIN'S LYMPHOMA [None]
  - RENAL CANCER [None]
